FAERS Safety Report 24915971 (Version 1)
Quarter: 2025Q1

REPORT INFORMATION
  Report Type: Spontaneous
  Country: PL (occurrence: PL)
  Receive Date: 20250203
  Receipt Date: 20250203
  Transmission Date: 20250409
  Serious: Yes (Other)
  Sender: ACCORD
  Company Number: None

PATIENT
  Sex: Female

DRUGS (12)
  1. METHOTREXATE [Suspect]
     Active Substance: METHOTREXATE
     Indication: Graft versus host disease
  2. RITUXIMAB [Suspect]
     Active Substance: RITUXIMAB
     Indication: Product used for unknown indication
  3. ETANERCEPT [Suspect]
     Active Substance: ETANERCEPT
     Indication: Product used for unknown indication
  4. BASILIXIMAB [Suspect]
     Active Substance: BASILIXIMAB
     Indication: Product used for unknown indication
  5. CYCLOSPORINE [Suspect]
     Active Substance: CYCLOSPORINE
     Indication: Graft versus host disease
  6. RUXOLITINIB [Suspect]
     Active Substance: RUXOLITINIB
     Indication: Product used for unknown indication
  7. RITUXIMAB [Suspect]
     Active Substance: RITUXIMAB
     Indication: Product used for unknown indication
  8. RITUXIMAB [Suspect]
     Active Substance: RITUXIMAB
     Indication: Product used for unknown indication
  9. METHOTREXATE [Suspect]
     Active Substance: METHOTREXATE
     Indication: Graft versus host disease
     Dosage: 15 MG, QW
  10. METHOTREXATE [Suspect]
     Active Substance: METHOTREXATE
     Indication: Graft versus host disease
  11. RUXOLITINIB [Suspect]
     Active Substance: RUXOLITINIB
     Indication: Product used for unknown indication
  12. RUXOLITINIB [Suspect]
     Active Substance: RUXOLITINIB
     Indication: Product used for unknown indication

REACTIONS (18)
  - Cytokine release syndrome [Unknown]
  - Capillary leak syndrome [Unknown]
  - Staphylococcal sepsis [Unknown]
  - Venoocclusive liver disease [Unknown]
  - Acute graft versus host disease [Unknown]
  - Pancytopenia [Unknown]
  - Chronic graft versus host disease [Unknown]
  - Drug hypersensitivity [Unknown]
  - Weight increased [Unknown]
  - Diarrhoea [Unknown]
  - Rash maculo-papular [Unknown]
  - Skin lesion [Unknown]
  - Nausea [Unknown]
  - Vomiting [Unknown]
  - Mouth ulceration [Unknown]
  - Body temperature increased [Unknown]
  - General physical health deterioration [Unknown]
  - Oral disorder [Unknown]

NARRATIVE: CASE EVENT DATE: 20231228
